FAERS Safety Report 7791622-9 (Version None)
Quarter: 2011Q3

REPORT INFORMATION
  Report Type: 
  Country: None (occurrence: None)
  Receive Date: 20110930
  Receipt Date: 20110930
  Transmission Date: 20111222
  Serious: No
  Sender: FDA-Public Use
  Company Number: None

PATIENT
  Sex: Male

DRUGS (1)
  1. ALDARA [Suspect]
     Dosage: THREE TIMES A WE TOPICAL TO GENITALIA
     Route: 061

REACTIONS (1)
  - EYELID OEDEMA [None]
